FAERS Safety Report 6690541-9 (Version None)
Quarter: 2010Q2

REPORT INFORMATION
  Report Type: 
  Country: None (occurrence: None)
  Receive Date: 20100421
  Receipt Date: 20100413
  Transmission Date: 20101027
  Serious: Yes (Death)
  Sender: FDA-Public Use
  Company Number: US-SANOFI-AVENTIS-2010SA022798

PATIENT
  Age: 91 Year
  Sex: Male
  Weight: 58.96 kg

DRUGS (4)
  1. PLAVIX [Suspect]
     Route: 048
     Dates: start: 20080101, end: 20100314
  2. MULTI-VITAMINS [Concomitant]
     Dates: end: 20100314
  3. ASPIRIN [Concomitant]
     Route: 048
     Dates: end: 20100314
  4. CARVEDILOL [Concomitant]
     Route: 048
     Dates: start: 20100301, end: 20100314

REACTIONS (3)
  - DEATH [None]
  - HEADACHE [None]
  - NECK PAIN [None]
